FAERS Safety Report 7386780-4 (Version None)
Quarter: 2011Q1

REPORT INFORMATION
  Report Type: 
  Country: None (occurrence: None)
  Receive Date: 20110331
  Receipt Date: 20110327
  Transmission Date: 20110831
  Serious: Yes (Other)
  Sender: FDA-Public Use
  Company Number: B0709620A

PATIENT
  Sex: Female

DRUGS (1)
  1. NICABATE PATCH [Suspect]
     Route: 062
     Dates: start: 20110321, end: 20110324

REACTIONS (3)
  - ANGINA PECTORIS [None]
  - INSOMNIA [None]
  - NERVOUSNESS [None]
